FAERS Safety Report 9133484 (Version 1)
Quarter: 2013Q1

REPORT INFORMATION
  Report Type: Spontaneous
  Country: US (occurrence: US)
  Receive Date: 20130301
  Receipt Date: 20130301
  Transmission Date: 20140127
  Serious: No
  Sender: FDA-Public Use
  Company Number: US-ASTRAZENECA-2013SE13351

PATIENT
  Age: 77 Year
  Sex: Female
  Weight: 65.8 kg

DRUGS (4)
  1. SYMBICORT  PMDI [Suspect]
     Indication: DYSPNOEA
     Dosage: 160 DAILY
     Route: 055
     Dates: start: 20130220, end: 20130220
  2. SYMBICORT  PMDI [Suspect]
     Indication: DYSPNOEA
     Dosage: 160/4.5, 2 PUFFS BID
     Route: 055
     Dates: start: 20130220, end: 20130220
  3. SIMVASTATIN [Concomitant]
     Indication: BLOOD CHOLESTEROL ABNORMAL
     Route: 048
  4. COLD MEDICATIONS [Concomitant]
     Indication: NASOPHARYNGITIS
     Dosage: PRN
     Route: 048

REACTIONS (3)
  - Dyspnoea [Recovered/Resolved]
  - Cough [Recovered/Resolved]
  - Dizziness [Recovered/Resolved]
